FAERS Safety Report 7358854-5 (Version None)
Quarter: 2011Q1

REPORT INFORMATION
  Report Type: 
  Country: None (occurrence: None)
  Receive Date: 20110317
  Receipt Date: 20110308
  Transmission Date: 20110831
  Serious: Yes (Death)
  Sender: FDA-Public Use
  Company Number: B0705025A

PATIENT
  Sex: Female
  Weight: 45 kg

DRUGS (9)
  1. BENET [Concomitant]
     Route: 048
     Dates: end: 20110219
  2. UNKNOWN DRUG [Concomitant]
     Dosage: 10MG PER DAY
     Route: 045
     Dates: end: 20110219
  3. REVOLADE [Suspect]
     Dosage: 25MG PER DAY
     Route: 048
     Dates: start: 20101224, end: 20110106
  4. FERRUM [Concomitant]
     Dosage: 100MG PER DAY
     Route: 048
     Dates: end: 20110101
  5. REVOLADE [Suspect]
     Indication: IDIOPATHIC THROMBOCYTOPENIC PURPURA
     Dosage: 12.5MG PER DAY
     Route: 048
     Dates: start: 20101210, end: 20101223
  6. LANSOPRAZOLE [Concomitant]
     Dosage: 15MG PER DAY
     Route: 048
     Dates: end: 20110219
  7. REVOLADE [Suspect]
     Dosage: 37.5MG PER DAY
     Route: 048
     Dates: start: 20110107, end: 20110120
  8. REVOLADE [Suspect]
     Dosage: 50MG PER DAY
     Route: 048
     Dates: start: 20110121, end: 20110218
  9. RITUXAN [Concomitant]
     Indication: IDIOPATHIC THROMBOCYTOPENIC PURPURA
     Dosage: 540MG PER DAY
     Route: 042
     Dates: start: 20110124, end: 20110215

REACTIONS (2)
  - PYREXIA [None]
  - PULMONARY ALVEOLAR HAEMORRHAGE [None]
